FAERS Safety Report 25948171 (Version 1)
Quarter: 2025Q4

REPORT INFORMATION
  Report Type: Spontaneous
  Country: AR (occurrence: AR)
  Receive Date: 20251022
  Receipt Date: 20251022
  Transmission Date: 20260117
  Serious: Yes (Hospitalization)
  Sender: SANDOZ
  Company Number: AR-002147023-NVSC2025AR056440

PATIENT
  Age: 69 Year
  Sex: Female

DRUGS (7)
  1. FULVESTRANT [Suspect]
     Active Substance: FULVESTRANT
     Dosage: 250 MG  EVERY 3 MONTHS
     Route: 065
  2. FULVESTRANT [Suspect]
     Active Substance: FULVESTRANT
     Indication: Breast cancer metastatic
     Dosage: 2 INJECTIONS, QMO (EVERY 28 DAYS)
     Route: 065
     Dates: start: 20240614
  3. KISQALI [Suspect]
     Active Substance: RIBOCICLIB SUCCINATE
     Dosage: 200 MG, TID
     Route: 048
  4. KISQALI [Suspect]
     Active Substance: RIBOCICLIB SUCCINATE
     Dosage: 2 (400 MG), QD
     Route: 065
  5. KISQALI [Suspect]
     Active Substance: RIBOCICLIB SUCCINATE
     Indication: Breast cancer metastatic
     Dosage: 600 MG (3 OF 200 MG), QD
     Route: 048
     Dates: start: 20240614
  6. ZOLEDRONIC ACID [Suspect]
     Active Substance: ZOLEDRONIC ACID
     Indication: Breast cancer metastatic
     Dosage: 4 MG, Q3MO  (AMPOULE)
     Route: 042
     Dates: start: 20240614
  7. METFORMIN [Concomitant]
     Active Substance: METFORMIN HYDROCHLORIDE
     Indication: Product used for unknown indication
     Dosage: 1000 MG, QD
     Route: 065

REACTIONS (11)
  - Peripheral swelling [Recovering/Resolving]
  - Gait inability [Unknown]
  - Blood glucose increased [Unknown]
  - Spinal disorder [Unknown]
  - Hypertension [Unknown]
  - Pain in extremity [Unknown]
  - Insomnia [Unknown]
  - Decreased immune responsiveness [Unknown]
  - Inappropriate schedule of product administration [Unknown]
  - Limb discomfort [Unknown]
  - Drug ineffective [Unknown]

NARRATIVE: CASE EVENT DATE: 20250501
